FAERS Safety Report 7771643-2 (Version None)
Quarter: 2011Q3

REPORT INFORMATION
  Report Type: 
  Country: None (occurrence: None)
  Receive Date: 20110922
  Receipt Date: 20110413
  Transmission Date: 20111222
  Serious: No
  Sender: FDA-Public Use
  Company Number: US-ASTRAZENECA-2009UW14924

PATIENT
  Age: 19457 Day
  Sex: Male
  Weight: 104.3 kg

DRUGS (22)
  1. LUDIOMIL [Concomitant]
     Dates: start: 20090101
  2. METOPROLOL [Concomitant]
     Indication: HYPERTENSION
     Dates: start: 20061121
  3. CYMBALTA [Concomitant]
     Indication: DEPRESSION
     Dates: start: 20061121
  4. SEROQUEL [Suspect]
     Route: 048
     Dates: start: 20010101
  5. LIPITOR [Concomitant]
     Indication: BLOOD CHOLESTEROL INCREASED
     Dates: start: 20061121
  6. SEROQUEL [Suspect]
     Indication: INSOMNIA
     Dosage: 100-300 MG
     Route: 048
     Dates: start: 20010101
  7. SEROQUEL [Suspect]
     Route: 048
     Dates: start: 20010101
  8. GEODON [Concomitant]
     Indication: DEPRESSION
     Route: 048
     Dates: start: 20040101
  9. SEROQUEL [Suspect]
     Indication: SCHIZOPHRENIA
     Dosage: 100-300 MG
     Route: 048
     Dates: start: 20010101
  10. ZOLOFT [Concomitant]
     Dates: start: 20070101
  11. LEXAPRO [Concomitant]
     Dates: start: 20061009
  12. SEROQUEL [Suspect]
     Indication: DEPRESSION
     Dosage: 100-300 MG
     Route: 048
     Dates: start: 20010101
  13. CYMBALTA [Concomitant]
     Indication: SCHIZOAFFECTIVE DISORDER
     Dates: start: 20061121
  14. ABILIFY [Concomitant]
     Dates: start: 20040101, end: 20050101
  15. THORAZINE [Concomitant]
     Dates: start: 19880101, end: 19900101
  16. SEROQUEL [Suspect]
     Indication: SCHIZOAFFECTIVE DISORDER
     Dosage: 100-300 MG
     Route: 048
     Dates: start: 20010101
  17. SEROQUEL [Suspect]
     Route: 048
     Dates: start: 20010101
  18. TRILAFON [Concomitant]
     Dates: start: 19750101, end: 19850101
  19. TRIAVIL [Concomitant]
     Dates: start: 19750101, end: 19850101
  20. SEROQUEL [Suspect]
     Route: 048
     Dates: start: 20010101
  21. GEODON [Concomitant]
     Indication: SCHIZOAFFECTIVE DISORDER
     Route: 048
     Dates: start: 20040101
  22. REMERON [Concomitant]
     Dates: start: 20090101

REACTIONS (9)
  - METABOLIC SYNDROME [None]
  - OBESITY [None]
  - TYPE 2 DIABETES MELLITUS [None]
  - GLUCOSE TOLERANCE IMPAIRED [None]
  - BLOOD CHOLESTEROL INCREASED [None]
  - BLOOD TRIGLYCERIDES INCREASED [None]
  - WEIGHT INCREASED [None]
  - HYPERTENSION [None]
  - HYPERLIPIDAEMIA [None]
